FAERS Safety Report 8226378-9 (Version None)
Quarter: 2012Q1

REPORT INFORMATION
  Report Type: 
  Country: None (occurrence: None)
  Receive Date: 20120321
  Receipt Date: 20120313
  Transmission Date: 20120608
  Serious: Yes (Other)
  Sender: FDA-Public Use
  Company Number: FR-ASTRAZENECA-2012SE17672

PATIENT
  Age: 68 Year
  Sex: Female

DRUGS (7)
  1. ENTOCORT EC [Suspect]
     Route: 048
     Dates: start: 20110121
  2. POTASSIUM CHLORIDE [Concomitant]
     Route: 048
  3. PREVISCAN [Concomitant]
     Route: 048
  4. HYDROCORTISONE [Concomitant]
     Route: 048
  5. DEPAKENE [Suspect]
     Indication: EPILEPSY
     Route: 048
     Dates: start: 20110107
  6. PENTASA [Concomitant]
     Route: 048
  7. KEPPRA [Suspect]
     Indication: EPILEPSY
     Route: 048
     Dates: start: 20110107

REACTIONS (1)
  - THROMBOCYTOPENIA [None]
